FAERS Safety Report 10152465 (Version 2)
Quarter: 2014Q2

REPORT INFORMATION
  Report Type: Spontaneous
  Country: US (occurrence: US)
  Receive Date: 20140505
  Receipt Date: 20140522
  Transmission Date: 20141212
  Serious: Yes (Hospitalization)
  Sender: FDA-Public Use
  Company Number: US-SA-2014SA055471

PATIENT
  Age: 78 Year
  Sex: Female
  Weight: 81.6 kg

DRUGS (14)
  1. LASIX [Suspect]
     Indication: PRODUCT USED FOR UNKNOWN INDICATION
     Dosage: STRENGTH 20 MG
     Route: 065
  2. ELIQUIS [Suspect]
     Indication: PRODUCT USED FOR UNKNOWN INDICATION
     Route: 065
     Dates: start: 201312
  3. ELIQUIS [Suspect]
     Indication: PRODUCT USED FOR UNKNOWN INDICATION
     Route: 065
     Dates: end: 201403
  4. ACETYLSALICYLIC ACID [Concomitant]
  5. ACETYLSALICYLIC ACID [Concomitant]
  6. CLOPIDOGREL [Concomitant]
  7. COREG [Concomitant]
  8. LISINOPRIL [Concomitant]
  9. POTASSIUM CHLORIDE [Concomitant]
  10. LEVOXYL [Concomitant]
  11. SIMVASTATIN [Concomitant]
  12. CENTRUM SILVER [Concomitant]
  13. VITAMIN C [Concomitant]
  14. CALTRATE [Concomitant]
     Dosage: 2 DAILY 600+D

REACTIONS (1)
  - Gastrointestinal haemorrhage [Recovered/Resolved]
